FAERS Safety Report 11096136 (Version 1)
Quarter: 2015Q2

REPORT INFORMATION
  Report Type: Spontaneous
  Country: US (occurrence: None)
  Receive Date: 20150506
  Receipt Date: 20150506
  Transmission Date: 20150821
  Serious: No
  Sender: FDA-Public Use
  Company Number: None

PATIENT
  Age: 59 Year
  Sex: Male
  Weight: 77.11 kg

DRUGS (7)
  1. OXYCODONE ACETAMINOPHEN [Suspect]
     Active Substance: ACETAMINOPHEN\OXYCODONE HYDROCHLORIDE
     Indication: NECK PAIN
     Dosage: 120 EVERY 6 HOURS
     Route: 048
  2. OXYCODONE ACETAMINOPHEN [Suspect]
     Active Substance: ACETAMINOPHEN\OXYCODONE HYDROCHLORIDE
     Indication: MUSCULOSKELETAL PAIN
     Dosage: 120 EVERY 6 HOURS
     Route: 048
  3. COZAAR [Concomitant]
     Active Substance: LOSARTAN POTASSIUM
  4. ZANTAC [Concomitant]
     Active Substance: RANITIDINE HYDROCHLORIDE
  5. NORVASC [Concomitant]
     Active Substance: AMLODIPINE BESYLATE
  6. OXYCODONE ACETAMINOPHEN [Suspect]
     Active Substance: ACETAMINOPHEN\OXYCODONE HYDROCHLORIDE
     Indication: NECK PAIN
     Dosage: 120. 4 A DAY
     Route: 048
  7. OXYCODONE ACETAMINOPHEN [Suspect]
     Active Substance: ACETAMINOPHEN\OXYCODONE HYDROCHLORIDE
     Indication: MUSCULOSKELETAL PAIN
     Dosage: 120. 4 A DAY
     Route: 048

REACTIONS (6)
  - Drug ineffective [None]
  - Product substitution issue [None]
  - Nausea [None]
  - Depression [None]
  - Dyspepsia [None]
  - Malaise [None]

NARRATIVE: CASE EVENT DATE: 20150318
